FAERS Safety Report 7429978-9 (Version None)
Quarter: 2011Q2

REPORT INFORMATION
  Report Type: 
  Country: None (occurrence: None)
  Receive Date: 20110421
  Receipt Date: 20110418
  Transmission Date: 20111010
  Serious: Yes (Hospitalization, Other)
  Sender: FDA-Public Use
  Company Number: US-PFIZER INC-2010081113

PATIENT
  Sex: Female

DRUGS (6)
  1. CHANTIX [Suspect]
     Indication: SMOKING CESSATION THERAPY
     Dosage: 0.5MG AND 1MG
     Dates: start: 20070219, end: 20090801
  2. CYMBALTA [Concomitant]
     Indication: ANXIETY
  3. SYNTHROID [Concomitant]
     Indication: HYPOTHYROIDISM
  4. TRAZODONE [Concomitant]
     Indication: DEPRESSION
  5. CYMBALTA [Concomitant]
     Indication: DEPRESSION
  6. EFFEXOR [Concomitant]
     Indication: DEPRESSION
     Dosage: UNK

REACTIONS (6)
  - SUICIDE ATTEMPT [None]
  - INTENTIONAL OVERDOSE [None]
  - EMOTIONAL DISTRESS [None]
  - ANXIETY [None]
  - MENTAL DISORDER [None]
  - DEPRESSION [None]
